FAERS Safety Report 21010548 (Version 2)
Quarter: 2022Q3

REPORT INFORMATION
  Report Type: Spontaneous
  Country: US (occurrence: US)
  Receive Date: 20220627
  Receipt Date: 20220701
  Transmission Date: 20221027
  Serious: Yes (Death)
  Sender: FDA-Public Use
  Company Number: US-ALKERMES INC.-ALK-2022-002996

PATIENT
  Sex: Male
  Weight: 58.957 kg

DRUGS (4)
  1. VIVITROL [Suspect]
     Active Substance: NALTREXONE
     Indication: Drug dependence
     Dosage: 380 MILLIGRAM, Q4WK
     Route: 030
     Dates: start: 20220425, end: 20220425
  2. VIVITROL [Suspect]
     Active Substance: NALTREXONE
     Dosage: 380 MILLIGRAM, Q4WK
     Route: 030
     Dates: start: 20220328, end: 20220328
  3. VIVITROL [Suspect]
     Active Substance: NALTREXONE
     Dosage: 380 MILLIGRAM, Q4WK
     Route: 030
     Dates: start: 20220228, end: 20220228
  4. ADZENYS ER [Concomitant]
     Active Substance: AMPHETAMINE
     Indication: Product used for unknown indication
     Dosage: 125 MILLIGRAM, QD
     Route: 065

REACTIONS (3)
  - Overdose [Fatal]
  - Treatment noncompliance [Not Recovered/Not Resolved]
  - Imprisonment [Recovered/Resolved]

NARRATIVE: CASE EVENT DATE: 20220101
